FAERS Safety Report 8883182 (Version 2)
Quarter: 2013Q4

REPORT INFORMATION
  Report Type: Spontaneous
  Country: FR (occurrence: FR)
  Receive Date: 20121102
  Receipt Date: 20131001
  Transmission Date: 20140711
  Serious: Yes (Hospitalization, Other)
  Sender: FDA-Public Use
  Company Number: PHHY2012FR098777

PATIENT
  Age: 84 Year
  Sex: Female

DRUGS (8)
  1. EXELON [Suspect]
     Dosage: 4.5 MG, BID
     Route: 048
     Dates: start: 201202, end: 201202
  2. ZYPREXA [Suspect]
     Dosage: 5 MG, QD
     Route: 048
     Dates: start: 201202, end: 201202
  3. SEROPRAM [Suspect]
     Dosage: 20 MG, QD
     Route: 048
     Dates: start: 201202, end: 201202
  4. KARDEGIC [Concomitant]
     Dosage: 75 MG, UNK
  5. COAPROVEL [Concomitant]
  6. LOVENOX [Concomitant]
     Dosage: 4000 IU, UNK
  7. IMOVANE [Concomitant]
     Dosage: 7.5 MG, UNK
     Dates: end: 201202
  8. PROTELOS [Concomitant]
     Dosage: 2 G, UNK

REACTIONS (7)
  - Fracture [Unknown]
  - Extrapyramidal disorder [Recovered/Resolved]
  - Dysarthria [Recovered/Resolved]
  - Intermittent claudication [Unknown]
  - Resting tremor [Recovered/Resolved]
  - Muscle rigidity [Recovered/Resolved]
  - Anxiety [Unknown]
